FAERS Safety Report 8301231-0 (Version None)
Quarter: 2012Q2

REPORT INFORMATION
  Report Type: 
  Country: None (occurrence: None)
  Receive Date: 20120420
  Receipt Date: 20120417
  Transmission Date: 20120825
  Serious: Yes (Other)
  Sender: FDA-Public Use
  Company Number: US-AMGEN-USASP2012024391

PATIENT
  Age: 68 Year
  Sex: Female

DRUGS (7)
  1. CALCIUM [Concomitant]
  2. ASPIRIN [Concomitant]
     Dosage: UNK
  3. PROLIA [Suspect]
     Indication: OSTEOPOROSIS POSTMENOPAUSAL
     Dosage: 60 MG, Q6MO
     Dates: start: 20111027
  4. NIFEDIPINE [Concomitant]
     Dosage: UNK
  5. VITAMIN D [Concomitant]
     Dosage: UNK
  6. VITAMIN B-12 [Concomitant]
     Dosage: UNK
  7. PANTOPRAZOLE [Concomitant]
     Dosage: UNK

REACTIONS (2)
  - OSTEONECROSIS [None]
  - BONE MARROW OEDEMA [None]
